FAERS Safety Report 22095414 (Version 5)
Quarter: 2023Q2

REPORT INFORMATION
  Report Type: Spontaneous
  Country: US (occurrence: US)
  Receive Date: 20230314
  Receipt Date: 20230605
  Transmission Date: 20230722
  Serious: Yes (Other)
  Sender: FDA-Public Use
  Company Number: US-PFIZER INC-PV202300046375

PATIENT
  Age: 88 Year
  Sex: Female
  Weight: 62.585 kg

DRUGS (2)
  1. PREMARIN [Suspect]
     Active Substance: ESTROGENS, CONJUGATED
     Indication: Hot flush
     Dosage: 0.45 MG, DAILY
     Route: 048
     Dates: start: 2018, end: 2018
  2. PREMARIN [Suspect]
     Active Substance: ESTROGENS, CONJUGATED
     Indication: Hormone replacement therapy
     Dosage: 0.45 MG, DAILY
     Route: 048
     Dates: start: 2018

REACTIONS (1)
  - Sudden hearing loss [Unknown]
